FAERS Safety Report 23897035 (Version 1)
Quarter: 2024Q2

REPORT INFORMATION
  Report Type: Spontaneous
  Country: CN (occurrence: CN)
  Receive Date: 20240524
  Receipt Date: 20240524
  Transmission Date: 20240716
  Serious: Yes (Other)
  Sender: FDA-Public Use
  Company Number: CN-ELI_LILLY_AND_COMPANY-CN202405008053

PATIENT
  Age: 72 Year
  Sex: Male

DRUGS (1)
  1. GEMCITABINE HYDROCHLORIDE [Suspect]
     Active Substance: GEMCITABINE HYDROCHLORIDE
     Indication: Gastric cancer
     Dosage: 40 MG, UNKNOWN
     Route: 048
     Dates: start: 20240319

REACTIONS (8)
  - Malignant neoplasm progression [Unknown]
  - Arteriosclerosis [Unknown]
  - Cholecystitis chronic [Unknown]
  - Renal cyst [Unknown]
  - Bone hypertrophy [Unknown]
  - Discomfort [Unknown]
  - Off label use [Unknown]
  - Oedema [Unknown]
